FAERS Safety Report 5701447-3 (Version None)
Quarter: 2008Q2

REPORT INFORMATION
  Report Type: 
  Country: None (occurrence: None)
  Receive Date: 20080410
  Receipt Date: 20080403
  Transmission Date: 20081010
  Serious: Yes (Other)
  Sender: FDA-Public Use
  Company Number: IT-GENENTECH-258995

PATIENT
  Age: 45 Year
  Sex: Male

DRUGS (2)
  1. XOLAIR [Suspect]
     Indication: DRUG USE FOR UNKNOWN INDICATION
     Dates: start: 20061101
  2. STEROIDS (UNK INGREDIENTS) [Concomitant]
     Indication: ASTHMA

REACTIONS (1)
  - ALLERGIC GRANULOMATOUS ANGIITIS [None]
